FAERS Safety Report 8310852-0 (Version None)
Quarter: 2012Q2

REPORT INFORMATION
  Report Type: 
  Country: None (occurrence: None)
  Receive Date: 20120425
  Receipt Date: 20120416
  Transmission Date: 20120825
  Serious: Yes (Hospitalization)
  Sender: FDA-Public Use
  Company Number: FR-ASTRAZENECA-2012SE25249

PATIENT
  Age: 78 Year
  Sex: Female

DRUGS (5)
  1. COLCHICINE [Suspect]
     Route: 048
     Dates: start: 20120209, end: 20120216
  2. AMOXICILLIN TRIHYDRATE [Concomitant]
     Indication: PNEUMONIA
  3. CEFTRIAXONE [Concomitant]
     Indication: PNEUMONIA
  4. NEXIUM [Suspect]
     Route: 048
     Dates: start: 20120208, end: 20120214
  5. TEGRETOL [Concomitant]
     Indication: EPILEPSY

REACTIONS (2)
  - NEUTROPENIA [None]
  - AGRANULOCYTOSIS [None]
